FAERS Safety Report 19188979 (Version 3)
Quarter: 2021Q3

REPORT INFORMATION
  Report Type: Report from Study
  Country: IN (occurrence: IN)
  Receive Date: 20210428
  Receipt Date: 20210810
  Transmission Date: 20211014
  Serious: Yes (Hospitalization, Other)
  Sender: FDA-Public Use
  Company Number: NVSC2021IN086446

PATIENT
  Age: 67 Year
  Sex: Female
  Weight: 47 kg

DRUGS (3)
  1. PIVIKTO [Suspect]
     Active Substance: ALPELISIB
     Indication: BREAST CANCER METASTATIC
     Dosage: 150 MG, QD
     Route: 065
     Dates: start: 20210523, end: 20210624
  2. PIVIKTO [Suspect]
     Active Substance: ALPELISIB
     Indication: PIK3CA-ACTIVATED MUTATION
     Route: 048
     Dates: start: 20210403
  3. PIVIKTO [Suspect]
     Active Substance: ALPELISIB
     Indication: HER2 NEGATIVE BREAST CANCER
     Dosage: 300 MG, QD
     Route: 065
     Dates: start: 20210420, end: 20210522

REACTIONS (6)
  - Hyperglycaemia [Not Recovered/Not Resolved]
  - Vomiting [Unknown]
  - Dyspnoea [Not Recovered/Not Resolved]
  - Product use issue [Unknown]
  - Asthenia [Not Recovered/Not Resolved]
  - Decreased appetite [Unknown]

NARRATIVE: CASE EVENT DATE: 20210406
